FAERS Safety Report 8161160-2 (Version None)
Quarter: 2012Q1

REPORT INFORMATION
  Report Type: 
  Country: None (occurrence: None)
  Receive Date: 20120224
  Receipt Date: 20120217
  Transmission Date: 20120608
  Serious: No
  Sender: FDA-Public Use
  Company Number: US-PFIZER INC-2012047232

PATIENT

DRUGS (1)
  1. CHANTIX [Suspect]

REACTIONS (2)
  - STOMATITIS [None]
  - DIZZINESS [None]
